FAERS Safety Report 8065990-7 (Version None)
Quarter: 2012Q1

REPORT INFORMATION
  Report Type: 
  Country: None (occurrence: None)
  Receive Date: 20120124
  Receipt Date: 20120120
  Transmission Date: 20120608
  Serious: Yes (Other)
  Sender: FDA-Public Use
  Company Number: US-JNJFOC-20111002637

PATIENT
  Sex: Female
  Weight: 62.6 kg

DRUGS (2)
  1. DOXORUBICIN HCL [Suspect]
     Indication: BREAST CANCER METASTATIC
     Route: 042
     Dates: start: 20101201, end: 20110601
  2. CHEMOTHERAPY,NOS [Suspect]
     Indication: BREAST CANCER METASTATIC
     Route: 065

REACTIONS (13)
  - ABNORMAL LOSS OF WEIGHT [None]
  - HAEMOGLOBIN DECREASED [None]
  - PAIN [None]
  - ASTHENIA [None]
  - METASTASES TO BONE [None]
  - RED BLOOD CELL COUNT DECREASED [None]
  - FEELING ABNORMAL [None]
  - INSOMNIA [None]
  - HEPATIC NEOPLASM MALIGNANT [None]
  - BONE DENSITY INCREASED [None]
  - METASTASES TO SPINE [None]
  - WHITE BLOOD CELL COUNT DECREASED [None]
  - WEIGHT DECREASED [None]
